FAERS Safety Report 9133622 (Version 1)
Quarter: 2013Q1

REPORT INFORMATION
  Report Type: Spontaneous
  Country: US (occurrence: US)
  Receive Date: 20130123
  Receipt Date: 20130123
  Transmission Date: 20140127
  Serious: Yes (Other)
  Sender: FDA-Public Use
  Company Number: US-RB-048981-13

PATIENT
  Age: 41 Year
  Sex: Male

DRUGS (3)
  1. MUCINEX D [Suspect]
     Indication: PRODUCT USED FOR UNKNOWN INDICATION
     Dosage: STOPPED ON 11/JAN/2013
     Route: 048
     Dates: start: 20130111
  2. MUCINEX D MAXIMUM STRENGTH [Suspect]
  3. PAXIL [Concomitant]
     Indication: BIPOLAR DISORDER

REACTIONS (1)
  - Hallucination [Recovered/Resolved]
